FAERS Safety Report 24058034 (Version 1)
Quarter: 2024Q3

REPORT INFORMATION
  Report Type: Spontaneous
  Country: US (occurrence: US)
  Receive Date: 20240707
  Receipt Date: 20240707
  Transmission Date: 20241017
  Serious: No
  Sender: BIOGEN
  Company Number: US-BIOGEN-2024BI01259679

PATIENT
  Age: 76 Year
  Sex: Female

DRUGS (2)
  1. SKYCLARYS [Interacting]
     Active Substance: OMAVELOXOLONE
     Indication: Friedreich^s ataxia
     Route: 050
     Dates: start: 20230808
  2. SKYCLARYS [Interacting]
     Active Substance: OMAVELOXOLONE
     Route: 050
     Dates: start: 20230808

REACTIONS (2)
  - Pneumonia [Unknown]
  - Drug interaction [Unknown]

NARRATIVE: CASE EVENT DATE: 20240401
